FAERS Safety Report 16117819 (Version 1)
Quarter: 2019Q1

REPORT INFORMATION
  Report Type: Spontaneous
  Country: FR (occurrence: FR)
  Receive Date: 20190326
  Receipt Date: 20190326
  Transmission Date: 20190418
  Serious: Yes (Other)
  Sender: FDA-Public Use
  Company Number: FR-BAYER-2019-056037

PATIENT
  Age: 12 Year
  Sex: Female
  Weight: 46 kg

DRUGS (1)
  1. ULTRAVIST [Suspect]
     Active Substance: IOPROMIDE
     Indication: COMPUTERISED TOMOGRAM ABDOMEN
     Dosage: 1 DF, ONCE
     Route: 042
     Dates: start: 20181009, end: 20181009

REACTIONS (4)
  - Loss of consciousness [Recovered/Resolved]
  - Headache [Recovered/Resolved]
  - Vision blurred [Recovered/Resolved]
  - Language disorder [Recovered/Resolved]

NARRATIVE: CASE EVENT DATE: 20181009
